FAERS Safety Report 24370446 (Version 1)
Quarter: 2024Q3

REPORT INFORMATION
  Report Type: Spontaneous
  Country: CN (occurrence: CN)
  Receive Date: 20240927
  Receipt Date: 20240927
  Transmission Date: 20241017
  Serious: Yes (Life-Threatening)
  Sender: JOHNSON AND JOHNSON
  Company Number: CN-JNJFOC-20240940063

PATIENT
  Age: 14 Year
  Sex: Male
  Weight: 50.7 kg

DRUGS (2)
  1. DARZALEX [Suspect]
     Active Substance: DARATUMUMAB
     Indication: Acute myeloid leukaemia
     Dosage: 2 DOSES
     Route: 041
     Dates: start: 20240906, end: 20240908
  2. SODIUM CHLORIDE [Concomitant]
     Active Substance: SODIUM CHLORIDE
     Dosage: 2 DOSES
     Route: 041
     Dates: start: 20240906, end: 20240908

REACTIONS (6)
  - Laryngeal discomfort [Recovering/Resolving]
  - Larynx irritation [Recovering/Resolving]
  - Hypersensitivity [Recovering/Resolving]
  - Infusion related reaction [Recovering/Resolving]
  - Off label use [Unknown]
  - Off label use [Unknown]

NARRATIVE: CASE EVENT DATE: 20240906
